FAERS Safety Report 21455907 (Version 1)
Quarter: 2022Q4

REPORT INFORMATION
  Report Type: Spontaneous
  Country: BH (occurrence: BH)
  Receive Date: 20221014
  Receipt Date: 20221014
  Transmission Date: 20230112
  Serious: Yes (Life-Threatening, Other)
  Sender: FDA-Public Use
  Company Number: BH-MACLEODS PHARMACEUTICALS US LTD-MAC2022037748

PATIENT

DRUGS (3)
  1. AMLODIPINE [Suspect]
     Active Substance: AMLODIPINE BESYLATE
     Indication: Hypertension
     Dosage: 5 MILLIGRAM
     Route: 065
  2. DICLOFENAC [Suspect]
     Active Substance: DICLOFENAC
     Indication: Flank pain
     Dosage: 75 MILLIGRAM (1 MG/KG)
     Route: 030
  3. CAPTOPRIL [Suspect]
     Active Substance: CAPTOPRIL
     Indication: Hypertension
     Dosage: 12.5 MILLIGRAM (STAT DOSE)
     Route: 065

REACTIONS (1)
  - Anaphylactic shock [Recovered/Resolved]
